FAERS Safety Report 5635139-6 (Version None)
Quarter: 2008Q1

REPORT INFORMATION
  Report Type: 
  Country: None (occurrence: None)
  Receive Date: 20080222
  Receipt Date: 20080213
  Transmission Date: 20080703
  Serious: Yes (Death)
  Sender: FDA-Public Use
  Company Number: NO-PFIZER INC-2008013536

PATIENT
  Sex: Male

DRUGS (7)
  1. CABERGOLINE [Suspect]
     Indication: PARKINSON'S DISEASE
     Route: 048
     Dates: start: 20010101, end: 20060101
  2. COMTESS [Concomitant]
     Indication: PARKINSON'S DISEASE
     Route: 048
  3. ALBYL-E [Concomitant]
     Route: 048
  4. RAMIPRIL [Concomitant]
     Route: 048
  5. SIMVASTATIN [Concomitant]
     Indication: HYPERLIPIDAEMIA
     Route: 048
  6. SINEMET [Concomitant]
     Indication: PARKINSON'S DISEASE
     Dosage: TEXT:50/200
     Route: 048
  7. FUROSEMIDE [Concomitant]
     Route: 048

REACTIONS (2)
  - AORTIC STENOSIS [None]
  - SUDDEN DEATH [None]
